FAERS Safety Report 9575890 (Version 1)
Quarter: 2013Q4

REPORT INFORMATION
  Report Type: Spontaneous
  Country: US (occurrence: US)
  Receive Date: 20131001
  Receipt Date: 20131001
  Transmission Date: 20140711
  Serious: No
  Sender: FDA-Public Use
  Company Number: US-AMGEN-USASP2013000249

PATIENT
  Age: 53 Year
  Sex: Female
  Weight: 46.26 kg

DRUGS (6)
  1. ENBREL [Suspect]
     Indication: RHEUMATOID ARTHRITIS
     Dosage: 50 MG, QWK
     Route: 058
  2. FOLIC ACID [Concomitant]
     Dosage: UNK
  3. METHOTREXATE [Concomitant]
     Dosage: 50 MG/2ML
  4. FISH OIL [Concomitant]
     Dosage: UNK
  5. CENTRUM SILVER                     /02363801/ [Concomitant]
     Dosage: UNK
  6. DIFLUCAN [Concomitant]
     Dosage: 100 MG, UNK

REACTIONS (1)
  - Rash papular [Unknown]
